FAERS Safety Report 13720921 (Version 1)
Quarter: 2017Q3

REPORT INFORMATION
  Report Type: Spontaneous
  Country: US (occurrence: US)
  Receive Date: 20170705
  Receipt Date: 20170705
  Transmission Date: 20171127
  Serious: Yes (Hospitalization)
  Sender: FDA-Public Use
  Company Number: None

PATIENT
  Age: 61 Year
  Sex: Male
  Weight: 79.2 kg

DRUGS (15)
  1. PREDNISONE. [Concomitant]
     Active Substance: PREDNISONE
  2. TACROLIMUS. [Concomitant]
     Active Substance: TACROLIMUS
  3. URSODIOL. [Concomitant]
     Active Substance: URSODIOL
  4. TESSALON [Concomitant]
     Active Substance: BENZONATATE
  5. PANTOPRAZOLE [Concomitant]
     Active Substance: PANTOPRAZOLE
  6. NATALIZUMAB [Suspect]
     Active Substance: NATALIZUMAB
     Indication: ACUTE GRAFT VERSUS HOST DISEASE
     Route: 042
  7. PROCHLORPERAZINE. [Concomitant]
     Active Substance: PROCHLORPERAZINE
     Indication: ACUTE GRAFT VERSUS HOST DISEASE
     Route: 042
     Dates: start: 20170622
  8. ACYCLOVIR. [Concomitant]
     Active Substance: ACYCLOVIR
  9. POSACONAZOLE [Concomitant]
     Active Substance: POSACONAZOLE
  10. HEPARIN [Concomitant]
     Active Substance: HEPARIN SODIUM
  11. LORAZEPAM. [Concomitant]
     Active Substance: LORAZEPAM
  12. ONDANSETRON [Concomitant]
     Active Substance: ONDANSETRON
  13. ALUMINUM HYDROXIDE (MAALOX) [Concomitant]
  14. ROBITUSSIN (GUAIFENESIN) [Concomitant]
     Active Substance: GUAIFENESIN
  15. OXYCODONE [Concomitant]
     Active Substance: OXYCODONE

REACTIONS (4)
  - Asthenia [None]
  - Syncope [None]
  - Dehydration [None]
  - Infection [None]

NARRATIVE: CASE EVENT DATE: 20170703
